FAERS Safety Report 18377165 (Version 2)
Quarter: 2020Q4

REPORT INFORMATION
  Report Type: Spontaneous
  Country: JP (occurrence: JP)
  Receive Date: 20201013
  Receipt Date: 20201105
  Transmission Date: 20210114
  Serious: Yes (Hospitalization, Other)
  Sender: FDA-Public Use
  Company Number: JP-GLAXOSMITHKLINE-JP2020JPN199307

PATIENT
  Age: 70 Year
  Sex: Male

DRUGS (2)
  1. RELVAR ELLIPTA [Suspect]
     Active Substance: FLUTICASONE FUROATE\VILANTEROL TRIFENATATE
     Indication: ASTHMA
     Dosage: 100 ?G, 1D
     Route: 055
     Dates: start: 20180217, end: 20200607
  2. PREDNISOLONE. [Suspect]
     Active Substance: PREDNISOLONE
     Indication: GIANT CELL ARTERITIS
     Dosage: 8 MG, 1D
     Route: 048

REACTIONS (8)
  - Faeces discoloured [Recovered/Resolved]
  - Polymyalgia rheumatica [Unknown]
  - Pain in jaw [Unknown]
  - COVID-19 pneumonia [Recovered/Resolved]
  - Coronavirus test positive [Recovered/Resolved]
  - Headache [Unknown]
  - Abdominal pain upper [Recovered/Resolved]
  - Giant cell arteritis [Unknown]

NARRATIVE: CASE EVENT DATE: 2020
